FAERS Safety Report 7897781-1 (Version None)
Quarter: 2011Q4

REPORT INFORMATION
  Report Type: 
  Country: None (occurrence: None)
  Receive Date: 20111107
  Receipt Date: 20111031
  Transmission Date: 20120403
  Serious: Yes (Hospitalization)
  Sender: FDA-Public Use
  Company Number: JP-ROCHE-1005208

PATIENT
  Age: 72 Year
  Sex: Female

DRUGS (4)
  1. CARBOPLATIN [Concomitant]
     Indication: LUNG ADENOCARCINOMA
     Dosage: AUC6, DAY1
     Route: 041
     Dates: start: 20100101
  2. PACLITAXEL [Concomitant]
     Indication: LUNG ADENOCARCINOMA
     Dosage: DAY1,8,15
     Route: 041
     Dates: start: 20100101
  3. PIPERACILLIN SODIUM [Concomitant]
     Indication: PYREXIA
     Route: 042
     Dates: start: 20100101
  4. AVASTIN [Suspect]
     Indication: LUNG ADENOCARCINOMA
     Dosage: DAY1
     Route: 041
     Dates: start: 20100101

REACTIONS (1)
  - PNEUMOTHORAX [None]
